FAERS Safety Report 4304579-X (Version None)
Quarter: 2004Q1

REPORT INFORMATION
  Report Type: 
  Country: None (occurrence: None)
  Receive Date: 20040224
  Receipt Date: 20040218
  Transmission Date: 20041129
  Serious: Yes (Hospitalization)
  Sender: FDA-Public Use
  Company Number: FR-JNJFOC-20031103074

PATIENT
  Age: 34 Year
  Sex: Female
  Weight: 62 kg

DRUGS (2)
  1. REMICADE [Suspect]
     Indication: ANKYLOSING SPONDYLITIS
     Dosage: 300 MG, INTRAVENOUS
     Route: 042
     Dates: start: 20030619, end: 20031023
  2. METHOTREXATE [Concomitant]

REACTIONS (2)
  - LUNG DISORDER [None]
  - PNEUMONIA VIRAL [None]
